FAERS Safety Report 12905939 (Version 1)
Quarter: 2016Q4

REPORT INFORMATION
  Report Type: Report from Study
  Country: FR (occurrence: FR)
  Receive Date: 20161103
  Receipt Date: 20161103
  Transmission Date: 20170207
  Serious: Yes (Death)
  Sender: FDA-Public Use
  Company Number: FR-ROCHE-1850175

PATIENT

DRUGS (2)
  1. CAPECITABINE. [Suspect]
     Active Substance: CAPECITABINE
     Indication: SQUAMOUS CELL CARCINOMA OF HEAD AND NECK
     Dosage: DOSE LEVEL 2
     Route: 048
  2. CISPLATIN. [Suspect]
     Active Substance: CISPLATIN
     Indication: SQUAMOUS CELL CARCINOMA OF HEAD AND NECK
     Dosage: DOSE LEVEL 2?DAY 1 EVERY 21 DAYS
     Route: 042

REACTIONS (2)
  - Renal failure [Fatal]
  - Neutropenia [Fatal]
